FAERS Safety Report 23983998 (Version 1)
Quarter: 2024Q2

REPORT INFORMATION
  Report Type: Spontaneous
  Country: PL (occurrence: PL)
  Receive Date: 20240618
  Receipt Date: 20240618
  Transmission Date: 20240716
  Serious: Yes (Other)
  Sender: FDA-Public Use
  Company Number: None

PATIENT
  Age: 69 Year
  Sex: Male
  Weight: 64 kg

DRUGS (1)
  1. IMBRUVICA [Suspect]
     Active Substance: IBRUTINIB
     Indication: Chronic lymphocytic leukaemia
     Dosage: 3 DOSAGE FORM
     Route: 048
     Dates: start: 20200405

REACTIONS (3)
  - Rash papular [Recovering/Resolving]
  - Rash pustular [Recovering/Resolving]
  - Rash pruritic [Recovering/Resolving]
